FAERS Safety Report 15026962 (Version 1)
Quarter: 2018Q2

REPORT INFORMATION
  Report Type: Report from Study
  Country: FR (occurrence: FR)
  Receive Date: 20180619
  Receipt Date: 20180619
  Transmission Date: 20180711
  Serious: Yes (Hospitalization, Disabling)
  Sender: FDA-Public Use
  Company Number: FR-TEVA-2018-FR-907887

PATIENT
  Age: 64 Year
  Sex: Female
  Weight: 41 kg

DRUGS (4)
  1. INFLIXIMAB HOSPIRA [Suspect]
     Active Substance: INFLIXIMAB
     Indication: PRODUCT USED FOR UNKNOWN INDICATION
     Dosage: WEEKLY
     Route: 048
     Dates: start: 20171108
  2. CICLOSPORIN [Suspect]
     Active Substance: CYCLOSPORINE
     Indication: PRODUCT USED FOR UNKNOWN INDICATION
     Dosage: UNK
     Route: 065
  3. INC424 [Suspect]
     Active Substance: RUXOLITINIB
     Indication: ACUTE GRAFT VERSUS HOST DISEASE
     Dosage: UNK
     Route: 048
  4. MYCOPHENOLATE MOFETIL. [Concomitant]
     Active Substance: MYCOPHENOLATE MOFETIL
     Indication: PROPHYLAXIS
     Dosage: 15 MG/KG DAILY;
     Route: 048
     Dates: start: 20171018

REACTIONS (4)
  - Polyomavirus-associated nephropathy [Not Recovered/Not Resolved]
  - Incorrect route of drug administration [Unknown]
  - Renal failure [Not Recovered/Not Resolved]
  - Urinary bladder haemorrhage [Recovered/Resolved]

NARRATIVE: CASE EVENT DATE: 20171204
